FAERS Safety Report 15588084 (Version 1)
Quarter: 2018Q4

REPORT INFORMATION
  Report Type: Spontaneous
  Country: TH (occurrence: TH)
  Receive Date: 20181105
  Receipt Date: 20181105
  Transmission Date: 20190205
  Serious: Yes (Life-Threatening)
  Sender: FDA-Public Use
  Company Number: TH-GE HEALTHCARE LIFE SCIENCES-2018CSU004491

PATIENT

DRUGS (1)
  1. VISIPAQUE [Suspect]
     Active Substance: IODIXANOL
     Indication: PRODUCT USED FOR UNKNOWN INDICATION
     Dosage: 100 ML, SINGLE
     Route: 065
     Dates: start: 20181009, end: 20181009

REACTIONS (6)
  - Hypotension [Unknown]
  - Foaming at mouth [Unknown]
  - Erythema [Unknown]
  - Palpitations [Unknown]
  - Swelling face [Unknown]
  - Seizure [Unknown]

NARRATIVE: CASE EVENT DATE: 20181009
